FAERS Safety Report 6164614-3 (Version None)
Quarter: 2009Q2

REPORT INFORMATION
  Report Type: 
  Country: None (occurrence: None)
  Receive Date: 20090423
  Receipt Date: 20090417
  Transmission Date: 20091009
  Serious: Yes (Other)
  Sender: FDA-Public Use
  Company Number: US-ELI_LILLY_AND_COMPANY-US200904003841

PATIENT
  Sex: Female
  Weight: 77.098 kg

DRUGS (5)
  1. BYETTA [Suspect]
     Indication: TYPE 2 DIABETES MELLITUS
     Dosage: 5 UG, 2/D
     Route: 058
     Dates: start: 20090327
  2. METFORMIN HCL [Concomitant]
     Indication: TYPE 2 DIABETES MELLITUS
     Dosage: 500 MG, 2/D
     Route: 048
  3. AMITRIPTLINE HYDROCHLORIDE TAB [Concomitant]
     Indication: NEUROPATHY PERIPHERAL
     Dosage: UNK, UNKNOWN
     Dates: start: 20081101
  4. AMBIEN [Concomitant]
     Dosage: UNK, UNKNOWN
  5. CHOLESTEROL- AND TRIGLYCERIDE REDUCERS [Concomitant]
     Dosage: UNK, UNKNOWN
     Dates: start: 20060101, end: 20090301

REACTIONS (8)
  - CELLULITIS [None]
  - CHEST DISCOMFORT [None]
  - DECREASED APPETITE [None]
  - DYSPEPSIA [None]
  - PAIN [None]
  - RASH PRURITIC [None]
  - THROAT TIGHTNESS [None]
  - WEIGHT DECREASED [None]
